FAERS Safety Report 8479020-6 (Version None)
Quarter: 2012Q2

REPORT INFORMATION
  Report Type: 
  Country: None (occurrence: None)
  Receive Date: 20120629
  Receipt Date: 20120621
  Transmission Date: 20120825
  Serious: Yes (Life-Threatening)
  Sender: FDA-Public Use
  Company Number: JP-MERCK-1206USA01785

PATIENT
  Age: 76 Year
  Sex: Male

DRUGS (18)
  1. ENALAPRIL MALEATE [Suspect]
     Indication: HYPERTENSION
     Dosage: AFTER THE LUNCH
     Route: 048
     Dates: end: 20120425
  2. ENALAPRIL MALEATE [Suspect]
     Indication: VENTRICULAR FAILURE
     Dosage: AFTER THE LUNCH
     Route: 048
     Dates: end: 20120425
  3. FAMOTIDINE [Suspect]
     Dosage: AFTER THE LUNCH
     Route: 048
     Dates: end: 20120425
  4. ASPIRIN [Concomitant]
     Indication: ACUTE MYOCARDIAL INFARCTION
     Dosage: AFTER THE LUNCH
     Route: 048
  5. KENTAN [Suspect]
     Indication: HEADACHE
     Dosage: AT THE THERMACOGENOSIS PAIN HEAD
     Route: 048
     Dates: end: 20120425
  6. AMLODIPINE BESYLATE [Suspect]
     Indication: HYPERTENSION
     Dosage: AFTER THE LUNCH
     Route: 048
     Dates: end: 20120425
  7. CARVEDILOL [Concomitant]
     Indication: HYPERTENSION
     Dosage: AFTER THE LUNCH
     Route: 048
  8. OLOPATADINE HCL [Suspect]
     Dosage: NEMUMAE AFTER BREAKFAST
     Route: 048
     Dates: end: 20120425
  9. STROMECTOL [Suspect]
     Indication: ACARODERMATITIS
     Dosage: DAILY DOSAGE UNKNOWN
     Route: 048
     Dates: start: 20120418, end: 20120418
  10. JANUVIA [Concomitant]
     Indication: DIABETES MELLITUS
     Dosage: AFTER THE LUNCH
     Route: 048
  11. CARVEDILOL [Concomitant]
     Indication: VENTRICULAR FAILURE
     Dosage: AFTER THE LUNCH
     Route: 048
  12. AVAPRO [Suspect]
     Dosage: AFTER THE LUNCH
     Route: 048
     Dates: end: 20120425
  13. LIVALO [Concomitant]
     Indication: HYPERLIPIDAEMIA
     Dosage: AFTER THE LUNCH
     Route: 048
  14. AMLODIPINE BESYLATE [Suspect]
     Indication: VENTRICULAR FAILURE
     Dosage: AFTER THE LUNCH
     Route: 048
     Dates: end: 20120425
  15. STROMECTOL [Suspect]
     Dosage: DAILY DOSAGE UNKNOWN
     Route: 048
     Dates: start: 20120418, end: 20120418
  16. PLAVIX [Concomitant]
     Indication: ACUTE MYOCARDIAL INFARCTION
     Dosage: AFTER THE LUNCH
     Route: 048
  17. KENTAN [Suspect]
     Indication: PYREXIA
     Dosage: AT THE THERMACOGENOSIS PAIN HEAD
     Route: 048
     Dates: end: 20120425
  18. EURAX [Concomitant]
     Dosage: DAILY DOSAGE UNKNOWN
     Route: 061

REACTIONS (3)
  - DERMATITIS EXFOLIATIVE [None]
  - OFF LABEL USE [None]
  - EOSINOPHILIA [None]
